FAERS Safety Report 8294454-0 (Version None)
Quarter: 2012Q2

REPORT INFORMATION
  Report Type: 
  Country: None (occurrence: None)
  Receive Date: 20120418
  Receipt Date: 20120416
  Transmission Date: 20120825
  Serious: Yes (Death)
  Sender: FDA-Public Use
  Company Number: NL-GENZYME-CLOF-1002119

PATIENT
  Sex: Male
  Weight: 80 kg

DRUGS (11)
  1. COLISTIN SULFATE [Concomitant]
     Indication: PROPHYLAXIS
     Dosage: 100 MG, QID
     Route: 048
     Dates: start: 20120103, end: 20120117
  2. EVOLTRA [Suspect]
     Indication: HAEMATOLOGICAL MALIGNANCY
     Dosage: 10 MG/M2, QOD, ON DAYS 2, 4, 6, 8, 10
     Route: 042
     Dates: start: 20120105, end: 20120113
  3. ALLOPURINOL [Concomitant]
     Indication: PROPHYLAXIS
     Dosage: 300 MG, QD
     Route: 048
     Dates: start: 20111231, end: 20120109
  4. VALACYCLOVIR HYDROCHLORIDE [Concomitant]
     Indication: PROPHYLAXIS
     Dosage: 500 MG, BID
     Route: 048
     Dates: start: 20120104, end: 20120116
  5. CYTARABINE [Suspect]
     Indication: HAEMATOLOGICAL MALIGNANCY
     Dosage: 100 MG/M2, QD
     Route: 042
     Dates: start: 20120104, end: 20120113
  6. ACYCLOVIR [Concomitant]
     Dosage: 250 MG, QD
     Route: 042
     Dates: start: 20120116, end: 20120125
  7. CEFTAZIDIME [Concomitant]
     Indication: PYREXIA
     Dosage: 1000 MG, QID
     Route: 042
     Dates: start: 20120103, end: 20120109
  8. IDARUBICIN HCL [Suspect]
     Indication: HAEMATOLOGICAL MALIGNANCY
     Dosage: 10 MG/M2, QOD, ON DAYS 1, 3, 5
     Route: 042
     Dates: start: 20120104, end: 20120108
  9. ACYCLOVIR [Concomitant]
     Indication: PROPHYLAXIS
     Dosage: 500 MG, BID
     Route: 042
     Dates: start: 20120116, end: 20120125
  10. VFEND [Concomitant]
     Indication: PROPHYLAXIS
     Dosage: 200 MG, BID
     Route: 042
     Dates: start: 20120105, end: 20120125
  11. CEFUROXIME [Concomitant]
     Indication: PYREXIA
     Dosage: 750 MG, TID
     Route: 042
     Dates: start: 20120110, end: 20120116

REACTIONS (3)
  - RESPIRATORY FAILURE [None]
  - NEUTROPENIC COLITIS [None]
  - SEPSIS [None]
